FAERS Safety Report 8609491 (Version 2)
Quarter: 2012Q4

REPORT INFORMATION
  Report Type: 
  Country: CA (occurrence: CA)
  Receive Date: 20120612
  Receipt Date: 20120910
  Transmission Date: 20130627
  Serious: Yes (Hospitalization)
  Sender: FDA-Public Use
  Company Number: CA-BRISTOL-MYERS SQUIBB COMPANY-16569360

PATIENT
  Age: 52 Year
  Sex: Female

DRUGS (15)
  1. ORENCIA [Suspect]
     Indication: RHEUMATOID ARTHRITIS
     Dosage: IV,last dose:30Apr2012,15May12.no of inf:3
     Route: 042
     Dates: start: 20120417
  2. SYMBICORT [Concomitant]
     Dosage: 1 Df:3 puffs,200mcg/puff
  3. ADVAIR [Concomitant]
  4. ALVESCO [Concomitant]
     Dosage: 1 Df:2 puffs,200mcg/puff
  5. FLUCONAZOLE [Concomitant]
  6. LITHIUM [Concomitant]
  7. SINGULAIR [Concomitant]
  8. FOSAVANCE [Concomitant]
     Dosage: 1 Df : 70mg + 140mg
  9. LANSOPRAZOLE [Concomitant]
  10. DOMPERIDONE [Concomitant]
  11. VENTOLIN [Concomitant]
     Dosage: 1 Df :2puffs BID,100mcg/puff
  12. ATIVAN [Concomitant]
     Dosage: 1 DF : 1/2-1 tab HS,1mg
  13. COLACE [Concomitant]
     Dosage: 1 Df: 1-2 caps,100mg
  14. SENNA [Concomitant]
     Dosage: 1 DF : 1-2tabs, 8.6mg
  15. PREDNISONE [Concomitant]
     Dosage: decreasing dose

REACTIONS (8)
  - Obliterative bronchiolitis [Unknown]
  - Nausea [Unknown]
  - Headache [Unknown]
  - Oropharyngeal pain [Unknown]
  - Vomiting [Unknown]
  - Diarrhoea [Unknown]
  - Dyspnoea [Unknown]
  - Cough [Unknown]
